FAERS Safety Report 15701800 (Version 1)
Quarter: 2018Q4

REPORT INFORMATION
  Report Type: Spontaneous
  Country: FR (occurrence: FR)
  Receive Date: 20181208
  Receipt Date: 20181208
  Transmission Date: 20190205
  Serious: Yes (Hospitalization)
  Sender: FDA-Public Use
  Company Number: FR-TEVA-2018-FR-983082

PATIENT
  Age: 76 Year
  Sex: Male
  Weight: 68 kg

DRUGS (4)
  1. VANCOMYCINE [Suspect]
     Active Substance: VANCOMYCIN
     Indication: ENDOCARDITIS
     Dosage: 30 MG/KG DAILY;
     Route: 041
     Dates: start: 20160330, end: 20160420
  2. GENTAMICINE [Suspect]
     Active Substance: GENTAMICIN
     Indication: ENDOCARDITIS
     Dosage: 3 GRAM DAILY;
     Route: 030
     Dates: start: 20160324, end: 20160406
  3. RIFADINE IV 600 MG, POUDRE ET SOLVANT POUR SOLUTION POUR PERFUSION [Suspect]
     Active Substance: RIFAMPIN
     Indication: ENDOCARDITIS
     Route: 041
     Dates: start: 20160407, end: 20160420
  4. AMOXICILLINE [Suspect]
     Active Substance: AMOXICILLIN
     Indication: ENDOCARDITIS
     Dosage: 6 GRAM DAILY;
     Route: 041
     Dates: start: 20160324, end: 20160407

REACTIONS (1)
  - Drug reaction with eosinophilia and systemic symptoms [Recovered/Resolved]

NARRATIVE: CASE EVENT DATE: 20160426
